FAERS Safety Report 23500028 (Version 1)
Quarter: 2024Q1

REPORT INFORMATION
  Report Type: Report from Study
  Country: JP (occurrence: JP)
  Receive Date: 20240208
  Receipt Date: 20240208
  Transmission Date: 20240410
  Serious: Yes (Hospitalization)
  Sender: FDA-Public Use
  Company Number: JP-ABBVIE-4160845

PATIENT
  Age: 53 Year
  Sex: Female

DRUGS (2)
  1. CARBIDOPA\LEVODOPA [Suspect]
     Active Substance: CARBIDOPA\LEVODOPA
     Indication: Parkinson^s disease
     Dosage: THE PRODUCT START DATE WAS IN MAR 2022; THE EVENT ONSET DATE WERE IN 2022.
     Route: 050
     Dates: start: 202203
  2. CARBIDOPA\LEVODOPA [Suspect]
     Active Substance: CARBIDOPA\LEVODOPA

REACTIONS (7)
  - Fracture [Unknown]
  - Device issue [Unknown]
  - Malaise [Unknown]
  - Stoma site pain [Not Recovered/Not Resolved]
  - Medical device site erosion [Recovering/Resolving]
  - Device occlusion [Recovered/Resolved]
  - Device kink [Recovered/Resolved]
